FAERS Safety Report 25764404 (Version 1)
Quarter: 2025Q3

REPORT INFORMATION
  Report Type: Spontaneous
  Country: US (occurrence: US)
  Receive Date: 20250905
  Receipt Date: 20250905
  Transmission Date: 20251021
  Serious: No
  Sender: DOMPE FARMACEUTICI
  Company Number: US-FARMAPROD-202502-0455

PATIENT
  Sex: Female

DRUGS (11)
  1. OXERVATE [Suspect]
     Active Substance: CENEGERMIN-BKBJ
     Indication: Neurotrophic keratopathy
     Route: 047
     Dates: start: 20250129
  2. VITAMIN B COMPLEX WITH C [Concomitant]
     Active Substance: ASCORBIC ACID\CALCIUM PANTOTHENATE\CYANOCOBALAMIN\NIACINAMIDE\PYRIDOXINE HYDROCHLORIDE\RIBOFLAVIN\TH
  3. MAGNESIUM [Concomitant]
     Active Substance: MAGNESIUM
  4. ASPIRIN [Concomitant]
     Active Substance: ASPIRIN
  5. GARLIC [Concomitant]
     Active Substance: GARLIC
  6. GLUCOSAMINE-CHONDROITIN-D3 [Concomitant]
  7. CALCIUM\CHOLECALCIFEROL [Concomitant]
     Active Substance: CALCIUM\CHOLECALCIFEROL
  8. ECHINACEA [Concomitant]
     Active Substance: ECHINACEA, UNSPECIFIED
  9. REFRESH DIGITAL [Concomitant]
     Active Substance: CARBOXYMETHYLCELLULOSE SODIUM\GLYCERIN\POLYSORBATE 80
  10. VYZULTA [Concomitant]
     Active Substance: LATANOPROSTENE BUNOD
  11. RESTASIS [Concomitant]
     Active Substance: CYCLOSPORINE

REACTIONS (1)
  - Eye pain [Not Recovered/Not Resolved]
